FAERS Safety Report 23319907 (Version 1)
Quarter: 2023Q4

REPORT INFORMATION
  Report Type: Spontaneous
  Country: US (occurrence: US)
  Receive Date: 20231220
  Receipt Date: 20231220
  Transmission Date: 20240110
  Serious: Yes (Hospitalization)
  Sender: FDA-Public Use
  Company Number: US-SA-SAC20231219000512

PATIENT
  Age: 53 Year
  Sex: Female

DRUGS (8)
  1. OXALIPLATIN [Suspect]
     Active Substance: OXALIPLATIN
     Indication: Oesophageal adenocarcinoma
     Dosage: 139.4 MG/M2, DAY 1
     Route: 058
     Dates: start: 20230619
  2. OXALIPLATIN [Suspect]
     Active Substance: OXALIPLATIN
     Dosage: 139.4 MG/M2, DAY 1
     Route: 058
     Dates: start: 20230703, end: 20230814
  3. TISLELIZUMAB [Suspect]
     Active Substance: TISLELIZUMAB
     Indication: Adenocarcinoma gastric
     Dosage: 400 MG
     Route: 042
     Dates: start: 20230619
  4. TISLELIZUMAB [Suspect]
     Active Substance: TISLELIZUMAB
     Dosage: 400 MG
     Route: 042
     Dates: start: 20230626, end: 20230814
  5. LEUCOVORIN CALCIUM [Suspect]
     Active Substance: LEUCOVORIN CALCIUM
     Indication: Adenocarcinoma gastric
     Dosage: 650 MG/M2, QOW
     Route: 042
     Dates: start: 20230619
  6. LEUCOVORIN CALCIUM [Suspect]
     Active Substance: LEUCOVORIN CALCIUM
     Dosage: 650 MG/M2, CYCLE 2
     Route: 042
     Dates: start: 20230703, end: 20230814
  7. FLUOROURACIL [Suspect]
     Active Substance: FLUOROURACIL
     Indication: Adenocarcinoma gastric
     Dosage: 650 MG/M2, QOW
     Route: 042
     Dates: start: 20230619
  8. FLUOROURACIL [Suspect]
     Active Substance: FLUOROURACIL
     Dosage: 650 MG/M2
     Route: 042
     Dates: start: 20230703, end: 20230814

REACTIONS (4)
  - Constipation [Recovering/Resolving]
  - Vomiting [Recovering/Resolving]
  - Dehydration [Recovering/Resolving]
  - Nausea [Recovering/Resolving]

NARRATIVE: CASE EVENT DATE: 20230720
